FAERS Safety Report 17367771 (Version 2)
Quarter: 2020Q4

REPORT INFORMATION
  Report Type: Report from Study
  Country: RU (occurrence: RU)
  Receive Date: 20200204
  Receipt Date: 20201027
  Transmission Date: 20210113
  Serious: Yes (Other)
  Sender: FDA-Public Use
  Company Number: RU-JNJFOC-20200142401

PATIENT
  Age: 40 Year
  Sex: Female
  Weight: 50 kg

DRUGS (2)
  1. RIVAROXABAN [Suspect]
     Active Substance: RIVAROXABAN
     Indication: THROMBOSIS PROPHYLAXIS
     Dosage: 10 MG, QD
     Route: 048
  2. KETOPROFEN. [Concomitant]
     Active Substance: KETOPROFEN
     Dosage: UNK

REACTIONS (3)
  - Incision site haematoma [Unknown]
  - Infection [Unknown]
  - Hip arthroplasty [Unknown]
